FAERS Safety Report 23279254 (Version 5)
Quarter: 2024Q4

REPORT INFORMATION
  Report Type: Spontaneous
  Country: CA (occurrence: CA)
  Receive Date: 20231209
  Receipt Date: 20241001
  Transmission Date: 20250115
  Serious: Yes (Other)
  Sender: CELLTRION
  Company Number: CA-CELLTRION INC.-2023CA006479

PATIENT

DRUGS (6)
  1. INFLECTRA [Suspect]
     Active Substance: INFLIXIMAB-DYYB
     Indication: Uveitis
     Dosage: 5 MG/KG INDUCTION WEEK 0 ,2, 6 THEN MAINTENANCE EVERY 4 WEEKS
     Route: 042
  2. INFLECTRA [Suspect]
     Active Substance: INFLIXIMAB-DYYB
     Indication: Vogt-Koyanagi-Harada disease
     Dosage: 5 MG/KG INDUCTION WEEK 0 ,2, 6 THEN MAINTENANCE EVERY 4 WEEKS
     Route: 042
     Dates: start: 20231026, end: 20231026
  3. INFLECTRA [Suspect]
     Active Substance: INFLIXIMAB-DYYB
     Dosage: 5 MG/KG INDUCTION WEEK 0 ,2, 6 THEN MAINTENANCE EVERY 6 WEEKS (380 MG, 4 WEEKS AND 6 DAYS)
     Route: 042
     Dates: start: 20231129
  4. INFLECTRA [Suspect]
     Active Substance: INFLIXIMAB-DYYB
     Dosage: 5 MG/KG, INDUCTION WEEK 0, 2, 6 THEN MAINTENANCE EVERY 6 WEEKS (400 MG, 5 WEEKS 6 DAYS)
     Route: 042
     Dates: start: 20240109
  5. INFLECTRA [Suspect]
     Active Substance: INFLIXIMAB-DYYB
     Dosage: 5 MG/KG, INDUCTION WEEK 0, 2, 6 THEN MAINTENANCE EVERY 6 WEEKS
     Route: 042
     Dates: start: 20240621
  6. INFLECTRA [Suspect]
     Active Substance: INFLIXIMAB-DYYB
     Dosage: 400 MG, 13 WEEKS (5 MG/KG, INDUCTION WEEK 2, 6 THEN MAINTENANCE EVERY 6 WEEKS)
     Route: 042
     Dates: start: 20240920

REACTIONS (4)
  - Weight increased [Not Recovered/Not Resolved]
  - Condition aggravated [Unknown]
  - Off label use [Unknown]
  - Inappropriate schedule of product administration [Unknown]

NARRATIVE: CASE EVENT DATE: 20231129
